FAERS Safety Report 24928410 (Version 1)
Quarter: 2025Q1

REPORT INFORMATION
  Report Type: Spontaneous
  Country: IR (occurrence: IR)
  Receive Date: 20250205
  Receipt Date: 20250205
  Transmission Date: 20250409
  Serious: Yes (Hospitalization, Disabling, Other)
  Sender: AZURITY PHARMACEUTICALS
  Company Number: IR-AZURITY PHARMACEUTICALS, INC.-AZR202501-000428

PATIENT
  Age: 8 Year
  Sex: Male

DRUGS (4)
  1. METHOTREXATE [Suspect]
     Active Substance: METHOTREXATE
     Indication: B-cell type acute leukaemia
     Dosage: 12.5 MILLIGRAM, MONTHLY
     Route: 037
  2. METHYLPREDNISOLONE ACETATE [Suspect]
     Active Substance: METHYLPREDNISOLONE ACETATE
     Indication: Product used for unknown indication
     Route: 042
  3. VINCRISTINE [Suspect]
     Active Substance: VINCRISTINE
     Indication: B-cell type acute leukaemia
     Dosage: UNK, WEEKLY
     Route: 042
  4. Intravenous immuniglobulin (IVIG) [Concomitant]
     Indication: Product used for unknown indication
     Route: 042

REACTIONS (5)
  - Cauda equina syndrome [Unknown]
  - Gait disturbance [Not Recovered/Not Resolved]
  - Neurotoxicity [Unknown]
  - Peroneal nerve palsy [Unknown]
  - Drug ineffective [Unknown]
